FAERS Safety Report 14154097 (Version 1)
Quarter: 2017Q4

REPORT INFORMATION
  Report Type: Spontaneous
  Country: AR (occurrence: AR)
  Receive Date: 20171102
  Receipt Date: 20171102
  Transmission Date: 20180321
  Serious: Yes (Other)
  Sender: FDA-Public Use
  Company Number: AR-PFIZER INC-2017427298

PATIENT
  Age: 60 Year
  Sex: Female

DRUGS (1)
  1. XELJANZ [Suspect]
     Active Substance: TOFACITINIB CITRATE
     Indication: RHEUMATOID ARTHRITIS
     Dosage: UNK, 1X/DAY
     Dates: start: 20161206, end: 20170927

REACTIONS (3)
  - Infection [Not Recovered/Not Resolved]
  - Condition aggravated [Unknown]
  - Gait inability [Unknown]

NARRATIVE: CASE EVENT DATE: 20170927
